FAERS Safety Report 5452613-6 (Version None)
Quarter: 2007Q3

REPORT INFORMATION
  Report Type: 
  Country: None (occurrence: None)
  Receive Date: 20070914
  Receipt Date: 20070910
  Transmission Date: 20080115
  Serious: Yes (Death)
  Sender: FDA-Public Use
  Company Number: NL-ASTRAZENECA-2007AC01635

PATIENT
  Age: 28166 Day
  Sex: Male

DRUGS (7)
  1. CRESTOR [Suspect]
     Indication: HYPERCHOLESTEROLAEMIA
     Route: 048
     Dates: start: 20070525, end: 20070603
  2. METFORMIN HCL [Concomitant]
  3. NOVOMIX [Concomitant]
     Dosage: 18E/16E
  4. CARBASALAATCALCIUM [Concomitant]
  5. METOPROLOL TARTRATE [Concomitant]
  6. HYDROCHLORTHAZIDE [Concomitant]
  7. TEVETEN [Concomitant]

REACTIONS (1)
  - DIFFUSE ALVEOLAR DAMAGE [None]
